FAERS Safety Report 14858942 (Version 2)
Quarter: 2021Q3

REPORT INFORMATION
  Report Type: Spontaneous
  Country: US (occurrence: US)
  Receive Date: 20180508
  Receipt Date: 20210915
  Transmission Date: 20211014
  Serious: Yes (Disabling)
  Sender: FDA-Public Use
  Company Number: US-TEVA-2017-US-834701

PATIENT
  Age: 68 Year
  Sex: Female

DRUGS (12)
  1. ATENOLOL. [Concomitant]
     Active Substance: ATENOLOL
     Route: 048
  2. DOCETAXEL SANOFI [Suspect]
     Active Substance: DOCETAXEL
     Indication: BREAST CANCER FEMALE
     Dates: start: 20131226, end: 20140227
  3. DOCETAXEL ACCORD [Suspect]
     Active Substance: DOCETAXEL
     Indication: BREAST CANCER FEMALE
     Dates: start: 20131226
  4. CYTOXAN [Suspect]
     Active Substance: CYCLOPHOSPHAMIDE
     Indication: BREAST CANCER FEMALE
     Dosage: NUMBER OF CYCLE ? 04, FREQUENCY ? EVERY THREE WEEKS
     Route: 042
     Dates: start: 20131226, end: 20140227
  5. DOCETAXEL SAGENT [Suspect]
     Active Substance: DOCETAXEL
     Indication: BREAST CANCER FEMALE
     Dosage: NUMBER OF CYCLE ? 04, FREQUENCY ? EVERY THREE WEEKS
     Route: 042
     Dates: start: 20131226, end: 20140227
  6. DOCETAXEL SANOFI [Suspect]
     Active Substance: DOCETAXEL
     Dates: start: 20131226, end: 20140227
  7. DOCETAXEL SAGENT [Suspect]
     Active Substance: DOCETAXEL
     Dosage: NUMBER OF CYCLE ? 04, FREQUENCY ? EVERY THREE WEEKS
     Route: 042
     Dates: start: 20131226, end: 20140227
  8. ANASTROZOLE. [Concomitant]
     Active Substance: ANASTROZOLE
     Indication: BREAST CANCER FEMALE
     Route: 048
     Dates: start: 20140613
  9. ROSUVASTATIN. [Concomitant]
     Active Substance: ROSUVASTATIN
  10. LOSARTAN AND HYDROCHLOROTHIAZIDE [Concomitant]
     Active Substance: HYDROCHLOROTHIAZIDE\LOSARTAN POTASSIUM
     Dosage: 100?25 MG
     Route: 048
     Dates: start: 2015
  11. DOCETAXEL ACCORD [Suspect]
     Active Substance: DOCETAXEL
     Dates: start: 20131226, end: 20140227
  12. METFORMIN [Concomitant]
     Active Substance: METFORMIN HYDROCHLORIDE
     Route: 048

REACTIONS (4)
  - Alopecia areata [Not Recovered/Not Resolved]
  - Hair texture abnormal [Not Recovered/Not Resolved]
  - Hair colour changes [Not Recovered/Not Resolved]
  - Madarosis [Not Recovered/Not Resolved]

NARRATIVE: CASE EVENT DATE: 201401
